FAERS Safety Report 5455499-9 (Version None)
Quarter: 2007Q3

REPORT INFORMATION
  Report Type: 
  Country: None (occurrence: None)
  Receive Date: 20070918
  Receipt Date: 20070330
  Transmission Date: 20080115
  Serious: Yes (Hospitalization)
  Sender: FDA-Public Use
  Company Number: US-ASTRAZENECA-2006UW21286

PATIENT
  Age: 605 Month
  Sex: Male
  Weight: 172.7 kg

DRUGS (3)
  1. SEROQUEL [Suspect]
     Indication: BIPOLAR DISORDER
     Dosage: 200-500 MG PO
     Dates: start: 20040411, end: 20041118
  2. SEROQUEL [Suspect]
     Indication: DEPRESSION
     Dosage: 200-500 MG PO
     Dates: start: 20040411, end: 20041118
  3. BUPROPION HCL [Suspect]
     Dates: start: 20040411

REACTIONS (2)
  - DIABETES MELLITUS [None]
  - DIABETIC KETOACIDOSIS [None]
